FAERS Safety Report 24593368 (Version 1)
Quarter: 2024Q4

REPORT INFORMATION
  Report Type: Spontaneous
  Country: US (occurrence: None)
  Receive Date: 20241107
  Receipt Date: 20241107
  Transmission Date: 20250115
  Serious: No
  Sender: Public
  Company Number: None

PATIENT
  Age: 2 Year
  Sex: Female
  Weight: 13.52 kg

DRUGS (1)
  1. DUPIXENT [Suspect]
     Active Substance: DUPILUMAB
     Indication: Dermatitis atopic

REACTIONS (3)
  - Periorbital swelling [None]
  - Rash [None]
  - Post procedural complication [None]

NARRATIVE: CASE EVENT DATE: 20240801
